FAERS Safety Report 8796850 (Version 2)
Quarter: 2012Q4

REPORT INFORMATION
  Report Type: Report from Study
  Country: JP (occurrence: JP)
  Receive Date: 20120919
  Receipt Date: 20121002
  Transmission Date: 20130627
  Serious: Yes (Hospitalization)
  Sender: FDA-Public Use
  Company Number: JP-VERTEX PHARMACEUTICAL INC.-2012-021441

PATIENT
  Age: 63 Year
  Sex: Female

DRUGS (5)
  1. VX-950 [Suspect]
     Indication: HEPATITIS C
     Dosage: UNK UNK, qd
     Route: 048
     Dates: start: 20120807, end: 20120810
  2. REBETOL [Suspect]
     Indication: HEPATITIS C
     Dosage: 600 mg, qd
     Route: 048
     Dates: start: 20120807, end: 20120820
  3. REBETOL [Suspect]
     Dosage: 400 mg, qd
     Route: 048
     Dates: start: 20120821, end: 20120824
  4. REBETOL [Suspect]
     Dosage: 200 mg, qd
     Route: 048
     Dates: start: 20120825
  5. PEGINTRON                          /01543001/ [Suspect]
     Indication: HEPATITIS C
     Dosage: 1.5, weekly
     Route: 058
     Dates: start: 20120807

REACTIONS (1)
  - Renal disorder [Recovered/Resolved]
